FAERS Safety Report 24005299 (Version 1)
Quarter: 2024Q2

REPORT INFORMATION
  Report Type: Spontaneous
  Country: US (occurrence: None)
  Receive Date: 20240623
  Receipt Date: 20240623
  Transmission Date: 20240716
  Serious: Yes (Disabling)
  Sender: FDA-Public Use
  Company Number: None

PATIENT
  Age: 66 Year
  Sex: Female
  Weight: 71.55 kg

DRUGS (5)
  1. ARMODAFINIL [Suspect]
     Active Substance: ARMODAFINIL
     Indication: Somnolence
     Dosage: 30 TABLETS DAILY ORAL?
     Route: 048
  2. ARMODAFINIL [Suspect]
     Active Substance: ARMODAFINIL
     Indication: Fatigue
  3. LURASIDONE [Concomitant]
     Active Substance: LURASIDONE
  4. Centrum Women 50+ multigummies [Concomitant]
  5. PHILLIPS ORIGINAL MILK OF MAGNESIA [Concomitant]
     Active Substance: MAGNESIUM HYDROXIDE

REACTIONS (5)
  - Rectal haemorrhage [None]
  - Vision blurred [None]
  - Dysstasia [None]
  - Sedation [None]
  - Product complaint [None]

NARRATIVE: CASE EVENT DATE: 20240623
